FAERS Safety Report 9088490 (Version 1)
Quarter: 2013Q1

REPORT INFORMATION
  Report Type: Report from Study
  Country: US (occurrence: US)
  Receive Date: 20130201
  Receipt Date: 20130201
  Transmission Date: 20140127
  Serious: No
  Sender: FDA-Public Use
  Company Number: US-ABBOTT-12P-163-1023736-00

PATIENT
  Sex: Male
  Weight: 95.34 kg

DRUGS (3)
  1. HUMIRA [Suspect]
     Indication: PSORIASIS
     Dates: start: 201204, end: 201210
  2. UNNAMED OTC MOISTURIZER [Concomitant]
     Indication: PSORIASIS
     Route: 061
  3. CLOBETASOL PROPIONATE [Concomitant]
     Indication: PSORIASIS

REACTIONS (2)
  - Psoriasis [Not Recovered/Not Resolved]
  - Rash macular [Not Recovered/Not Resolved]
